FAERS Safety Report 11628193 (Version 1)
Quarter: 2015Q4

REPORT INFORMATION
  Report Type: Spontaneous
  Country: US (occurrence: None)
  Receive Date: 20151013
  Receipt Date: 20151013
  Transmission Date: 20160304
  Serious: Yes (Death)
  Sender: FDA-Public Use
  Company Number: None

PATIENT
  Age: 64 Year
  Sex: Male
  Weight: 90.72 kg

DRUGS (13)
  1. JANUVIA [Concomitant]
     Active Substance: SITAGLIPTIN PHOSPHATE
  2. GLUCOSAMINE [Concomitant]
     Active Substance: GLUCOSAMINE
  3. CATAPRES [Suspect]
     Active Substance: CLONIDINE HYDROCHLORIDE
     Indication: HYPERTENSION
     Dosage: 2 PILLS TWICE DAILY TAKEN BY MOUTH
     Route: 048
     Dates: start: 20150818, end: 20150919
  4. K-DUR [Concomitant]
     Active Substance: POTASSIUM CHLORIDE
  5. GLUCOVANCE [Concomitant]
     Active Substance: GLYBURIDE\METFORMIN HYDROCHLORIDE
  6. METOPROLOL TARTRATE. [Concomitant]
     Active Substance: METOPROLOL TARTRATE
  7. VITAMIN C [Concomitant]
     Active Substance: ASCORBIC ACID
  8. VALSARTAN AND HYDROCHLOROTHIAZIDE [Concomitant]
     Active Substance: HYDROCHLOROTHIAZIDE\VALSARTAN
  9. AMLODIPINE [Concomitant]
     Active Substance: AMLODIPINE BESYLATE
  10. PUMPKIN SEED OIL [Concomitant]
  11. IRON [Concomitant]
     Active Substance: IRON
  12. LOVASTATIN. [Concomitant]
     Active Substance: LOVASTATIN
  13. XARELTO [Concomitant]
     Active Substance: RIVAROXABAN

REACTIONS (4)
  - Completed suicide [None]
  - Hallucination [None]
  - Depression [None]
  - Confusional state [None]

NARRATIVE: CASE EVENT DATE: 20150919
